FAERS Safety Report 5868297-9 (Version None)
Quarter: 2008Q3

REPORT INFORMATION
  Report Type: 
  Country: None (occurrence: None)
  Receive Date: 20080903
  Receipt Date: 20080901
  Transmission Date: 20090109
  Serious: Yes (Other)
  Sender: FDA-Public Use
  Company Number: GB-SP-2008-02668

PATIENT
  Age: 69 Year
  Sex: Male

DRUGS (2)
  1. IMMUCYST [Suspect]
     Indication: BLADDER CANCER
     Dosage: 81 MG ONCE WEEKLY
     Route: 043
     Dates: start: 20080722, end: 20080812
  2. IMMUCYST [Suspect]
     Dosage: 81 MG ONCE WEEKLY
     Route: 043
     Dates: start: 20080722, end: 20080812

REACTIONS (3)
  - ABNORMAL SENSATION IN EYE [None]
  - ARTHRALGIA [None]
  - EYE PAIN [None]
